FAERS Safety Report 16873386 (Version 1)
Quarter: 2019Q4

REPORT INFORMATION
  Report Type: Report from Study
  Country: None (occurrence: US)
  Receive Date: 20191001
  Receipt Date: 20191001
  Transmission Date: 20200122
  Serious: Yes (Hospitalization, Other)
  Sender: FDA-Public Use
  Company Number: US-ABBVIE-19K-163-2677560-00

PATIENT
  Age: 63 Year
  Sex: Female

DRUGS (1)
  1. HUMIRA [Suspect]
     Active Substance: ADALIMUMAB
     Indication: RHEUMATOID ARTHRITIS
     Route: 058

REACTIONS (15)
  - Oesophageal disorder [Recovering/Resolving]
  - Rheumatoid arthritis [Not Recovered/Not Resolved]
  - Product administration error [Not Recovered/Not Resolved]
  - Exostosis [Not Recovered/Not Resolved]
  - Deafness [Unknown]
  - Pre-existing condition improved [Recovered/Resolved]
  - Injection site pain [Not Recovered/Not Resolved]
  - Proctitis [Recovered/Resolved]
  - Osteosclerosis [Unknown]
  - Irritable bowel syndrome [Recovered/Resolved]
  - Vertigo [Recovered/Resolved]
  - Knee arthroplasty [Recovered/Resolved]
  - Rotator cuff syndrome [Not Recovered/Not Resolved]
  - Therapeutic response unexpected [Recovered/Resolved]
  - Post procedural infection [Recovered/Resolved]

NARRATIVE: CASE EVENT DATE: 201810
